FAERS Safety Report 5098763-8 (Version None)
Quarter: 2006Q3

REPORT INFORMATION
  Report Type: 
  Country: None (occurrence: None)
  Receive Date: 20060907
  Receipt Date: 20060828
  Transmission Date: 20061208
  Serious: Yes (Other)
  Sender: FDA-Public Use
  Company Number: JP-JPN-A200603391

PATIENT
  Age: 46 Year
  Sex: Male

DRUGS (2)
  1. VALTREX [Suspect]
     Indication: HERPES ZOSTER
     Dosage: 1000MG THREE TIMES PER DAY
     Route: 048
     Dates: start: 20060824, end: 20060828
  2. UNKNOWN MEDICATION [Concomitant]
     Route: 061

REACTIONS (2)
  - FALL [None]
  - SYNCOPE [None]
